FAERS Safety Report 10081433 (Version 1)
Quarter: 2014Q2

REPORT INFORMATION
  Report Type: Spontaneous
  Country: US (occurrence: None)
  Receive Date: 20140415
  Receipt Date: 20140415
  Transmission Date: 20141212
  Serious: Yes (Life-Threatening, Hospitalization, Disabling, Other)
  Sender: FDA-Public Use
  Company Number: None

PATIENT
  Age: 28 Year
  Sex: Male
  Weight: 52.9 kg

DRUGS (16)
  1. ASPARAGINASE [Suspect]
     Indication: ACUTE LYMPHOCYTIC LEUKAEMIA
     Route: 030
     Dates: start: 20131024, end: 20140311
  2. PEGASPARGASE [Concomitant]
  3. ACYCLOVIR [Concomitant]
  4. CYCLOBENZAPRINE [Concomitant]
  5. DEXAMETHASONE [Concomitant]
  6. DOCUSATE [Concomitant]
  7. FAMOTIDINE [Concomitant]
  8. FEXOFENADINE [Concomitant]
  9. FLUCONAZOLE [Concomitant]
  10. GABAPENTIN [Concomitant]
  11. HYDROXYZINE [Concomitant]
  12. LEVETIRACETAM [Concomitant]
  13. MORPHINE SULFATE [Concomitant]
  14. NYSTATIN [Concomitant]
  15. SULFAMETHOXAZOLE-TRIMETHOPRIM DS [Concomitant]
  16. THIOGUANINE [Concomitant]

REACTIONS (9)
  - Pyrexia [None]
  - Depressed level of consciousness [None]
  - Musculoskeletal stiffness [None]
  - Extremity contracture [None]
  - Cheyne-Stokes respiration [None]
  - Coma [None]
  - Decerebrate posture [None]
  - Gaze palsy [None]
  - Therapeutic response decreased [None]
